FAERS Safety Report 4380035-8 (Version None)
Quarter: 2004Q3

REPORT INFORMATION
  Report Type: 
  Country: None (occurrence: None)
  Receive Date: 20040614
  Receipt Date: 20040602
  Transmission Date: 20050211
  Serious: Yes (Hospitalization)
  Sender: FDA-Public Use
  Company Number: K200400830

PATIENT
  Age: 73 Year
  Sex: Male

DRUGS (9)
  1. ALTACE [Suspect]
     Dosage: 10 MG, QD, ORAL
     Route: 048
  2. OFLOXACIN [Suspect]
     Dosage: 200 MG, QD, ORAL
     Route: 048
     Dates: start: 20040424, end: 20040430
  3. FUROSEMIDE [Suspect]
     Dosage: 40 MG, QD, ORAL
     Route: 048
  4. OXACILLIN [Suspect]
     Dosage: 6 G, QD, ORAL
     Route: 048
     Dates: start: 20040422, end: 20040430
  5. CALCIPARINE [Suspect]
     Dosage: 1.2 ML, SUBCUTANEOUS
     Route: 058
     Dates: start: 20040423, end: 20040504
  6. KARDEGIC (ACETYLSALICYLATE LYSINE) [Suspect]
     Dosage: ORAL
     Route: 048
     Dates: start: 20040420
  7. STILNOX (ZOLPIDEM) [Concomitant]
  8. XANAX [Concomitant]
  9. JOSIR (TAMSULOSIN HYDROCHLORIDE) [Concomitant]

REACTIONS (3)
  - CUTANEOUS VASCULITIS [None]
  - MEDIASTINITIS [None]
  - STAPHYLOCOCCAL INFECTION [None]
